FAERS Safety Report 16462651 (Version 2)
Quarter: 2019Q3

REPORT INFORMATION
  Report Type: Spontaneous
  Country: GB (occurrence: GB)
  Receive Date: 20190621
  Receipt Date: 20190801
  Transmission Date: 20191004
  Serious: Yes (Disabling)
  Sender: FDA-Public Use
  Company Number: GB-TORRENT-00021284

PATIENT
  Age: 22 Year
  Sex: Male
  Weight: 69 kg

DRUGS (2)
  1. OLANZAPINE. [Suspect]
     Active Substance: OLANZAPINE
     Indication: PRODUCT USED FOR UNKNOWN INDICATION
     Route: 048
     Dates: start: 20190512, end: 20190515
  2. HALDOL [Suspect]
     Active Substance: HALOPERIDOL
     Indication: PRODUCT USED FOR UNKNOWN INDICATION
     Dosage: UNKNOWN
     Dates: start: 20190515

REACTIONS (6)
  - Swollen tongue [Recovering/Resolving]
  - Protrusion tongue [Not Recovered/Not Resolved]
  - Peripheral swelling [Recovered/Resolved]
  - Dystonia [Recovering/Resolving]
  - Muscle contracture [Recovering/Resolving]
  - Drug ineffective [Unknown]

NARRATIVE: CASE EVENT DATE: 20190515
